FAERS Safety Report 11224660 (Version 4)
Quarter: 2016Q2

REPORT INFORMATION
  Report Type: Report from Study
  Country: GB (occurrence: GB)
  Receive Date: 20150629
  Receipt Date: 20160620
  Transmission Date: 20160815
  Serious: Yes (Hospitalization, Other)
  Sender: FDA-Public Use
  Company Number: GB-ROCHE-1599761

PATIENT
  Age: 75 Year
  Sex: Male

DRUGS (6)
  1. COTRIMOXAZOLE [Concomitant]
     Active Substance: SULFAMETHOXAZOLE\TRIMETHOPRIM
     Route: 048
     Dates: start: 20130219
  2. SERETIDE [Concomitant]
     Active Substance: FLUTICASONE PROPIONATE\SALMETEROL XINAFOATE
     Dosage: INHALED
     Route: 050
     Dates: start: 20130219
  3. RITUXIMAB [Suspect]
     Active Substance: RITUXIMAB
     Indication: ANTI-NEUTROPHIL CYTOPLASMIC ANTIBODY POSITIVE VASCULITIS
     Dosage: FULL DOSES OF INDUCTION REGIME.?LAST DOSE DATE PRIOR TO ADVERSE EVENT 26/FEB/2015.
     Route: 042
     Dates: start: 20150213
  4. ALENDRONATE [Concomitant]
     Active Substance: ALENDRONATE SODIUM
     Route: 048
     Dates: start: 20130219
  5. LANSOPRAZOLE. [Concomitant]
     Active Substance: LANSOPRAZOLE
     Route: 048
     Dates: start: 20130219
  6. TIOTROPIUM [Concomitant]
     Active Substance: TIOTROPIUM
     Dosage: INHALED
     Route: 050
     Dates: start: 20130219

REACTIONS (4)
  - Myocarditis [Recovered/Resolved]
  - Sepsis [Recovered/Resolved]
  - Acute coronary syndrome [Recovered/Resolved]
  - Respiratory tract infection [Recovered/Resolved]

NARRATIVE: CASE EVENT DATE: 20150311
